FAERS Safety Report 18845977 (Version 1)
Quarter: 2021Q1

REPORT INFORMATION
  Report Type: Report from Study
  Country: US (occurrence: US)
  Receive Date: 20210203
  Receipt Date: 20210203
  Transmission Date: 20210419
  Serious: No
  Sender: FDA-Public Use
  Company Number: US-EXELIXIS-CABO-20029464

PATIENT
  Age: 74 Year
  Sex: Female

DRUGS (3)
  1. CABOMETYX [Suspect]
     Active Substance: CABOZANTINIB S-MALATE
     Indication: METASTASES TO SPINE
     Dosage: 60 MG, QD
     Dates: start: 20200529, end: 20200823
  2. CABOMETYX [Suspect]
     Active Substance: CABOZANTINIB S-MALATE
     Indication: RENAL CANCER
     Dosage: 60 MG, QD
     Dates: start: 20200327, end: 20200519
  3. CABOMETYX [Suspect]
     Active Substance: CABOZANTINIB S-MALATE
     Dosage: 60 MG, QD
     Dates: start: 202008, end: 202008

REACTIONS (10)
  - Oral pain [Unknown]
  - Taste disorder [Unknown]
  - Malignant neoplasm progression [Unknown]
  - Alopecia [Unknown]
  - Palmar-plantar erythrodysaesthesia syndrome [Not Recovered/Not Resolved]
  - Blood thyroid stimulating hormone decreased [Unknown]
  - Decreased appetite [Unknown]
  - Weight decreased [Unknown]
  - Lacrimation increased [Unknown]
  - Dry mouth [Unknown]

NARRATIVE: CASE EVENT DATE: 202004
